FAERS Safety Report 16498717 (Version 2)
Quarter: 2019Q3

REPORT INFORMATION
  Report Type: Report from Study
  Country: US (occurrence: US)
  Receive Date: 20190629
  Receipt Date: 20190711
  Transmission Date: 20191004
  Serious: Yes (Hospitalization, Other)
  Sender: FDA-Public Use
  Company Number: US-MYLANLABS-2018M1093421

PATIENT
  Age: 26 Year
  Sex: Male

DRUGS (50)
  1. TOBI PODHALER [Suspect]
     Active Substance: TOBRAMYCIN
     Dosage: UNK UNK, BID (112 OT)
     Route: 055
     Dates: start: 20180101, end: 20180129
  2. XARELTO [Concomitant]
     Active Substance: RIVAROXABAN
     Dosage: UNK
     Route: 065
     Dates: start: 20171031, end: 20171110
  3. XARELTO [Concomitant]
     Active Substance: RIVAROXABAN
     Dosage: UNK
     Route: 065
     Dates: start: 20180830, end: 20180913
  4. BACTRIM [Concomitant]
     Active Substance: SULFAMETHOXAZOLE\TRIMETHOPRIM
  5. TOBI PODHALER [Suspect]
     Active Substance: TOBRAMYCIN
     Dosage: UNK UNK, BID (112 OT)
     Route: 055
     Dates: start: 20161021, end: 20161118
  6. TOBI PODHALER [Suspect]
     Active Substance: TOBRAMYCIN
     Dosage: UNK
     Route: 055
     Dates: start: 20190307, end: 20190404
  7. ZITHROMAX [Concomitant]
     Active Substance: AZITHROMYCIN DIHYDRATE
     Indication: CYSTIC FIBROSIS LUNG
     Dosage: UNK
     Route: 065
     Dates: start: 20030828
  8. ORKAMBI [Concomitant]
     Active Substance: IVACAFTOR\LUMACAFTOR
     Indication: CYSTIC FIBROSIS LUNG
     Dosage: UNK
     Route: 065
     Dates: start: 20150811
  9. ACTIGALL [Concomitant]
     Active Substance: URSODIOL
     Indication: PROPHYLAXIS
     Dosage: UNK
     Route: 065
     Dates: start: 20060817, end: 20160623
  10. ALLEGRA [Concomitant]
     Active Substance: FEXOFENADINE HYDROCHLORIDE
     Indication: SEASONAL ALLERGY
     Dosage: UNK
     Route: 065
     Dates: start: 20140217
  11. CEFEPIME [Concomitant]
     Active Substance: CEFEPIME HYDROCHLORIDE
     Dosage: UNK
     Route: 065
     Dates: start: 20171031, end: 20171110
  12. TOBRAMYCIN. [Concomitant]
     Active Substance: TOBRAMYCIN
     Dosage: UNK
     Route: 065
     Dates: start: 20171031, end: 20171108
  13. TOBI PODHALER [Suspect]
     Active Substance: TOBRAMYCIN
     Dosage: UNK UNK, BID (112 OT)
     Route: 055
     Dates: start: 20160504, end: 20160601
  14. TOBI PODHALER [Suspect]
     Active Substance: TOBRAMYCIN
     Dosage: UNK UNK, BID (112 OT)
     Route: 055
     Dates: start: 20180301
  15. VENTOLIN [Concomitant]
     Active Substance: ALBUTEROL SULFATE
     Indication: DYSPNOEA
     Dosage: UNK
     Route: 065
     Dates: start: 19910425
  16. AQUADEKS                           /07679501/ [Concomitant]
     Active Substance: MINERALS\VITAMINS
     Indication: PANCREATIC FAILURE
     Dosage: UNK
     Route: 065
     Dates: start: 20010531
  17. ACETAMINOPHEN. [Concomitant]
     Active Substance: ACETAMINOPHEN
     Indication: PAIN
     Dosage: UNK
     Route: 065
     Dates: start: 20170503, end: 20170509
  18. CEFEPIME [Concomitant]
     Active Substance: CEFEPIME HYDROCHLORIDE
     Indication: ANTI-INFECTIVE THERAPY
     Dosage: UNK
     Route: 065
     Dates: start: 20171027, end: 20171027
  19. PULMOZYME [Concomitant]
     Active Substance: DORNASE ALFA
     Indication: CYSTIC FIBROSIS LUNG
     Dosage: UNK
     Route: 065
     Dates: start: 19970108
  20. HYDROCODONE [Concomitant]
     Active Substance: HYDROCODONE
     Indication: PAIN
     Dosage: UNK
     Route: 065
     Dates: start: 20170503, end: 20170509
  21. CEFEPIME [Concomitant]
     Active Substance: CEFEPIME HYDROCHLORIDE
     Dosage: UNK
     Route: 065
     Dates: start: 20171029, end: 20171031
  22. TOBRAMYCIN. [Concomitant]
     Active Substance: TOBRAMYCIN
     Dosage: UNK
  23. LOVENOX [Concomitant]
     Active Substance: ENOXAPARIN SODIUM
     Indication: THROMBOSIS PROPHYLAXIS
     Dosage: UNK
     Route: 065
     Dates: start: 20171028, end: 20171031
  24. TOBI PODHALER [Suspect]
     Active Substance: TOBRAMYCIN
     Indication: CYSTIC FIBROSIS
     Dosage: UNK
  25. TOBI PODHALER [Suspect]
     Active Substance: TOBRAMYCIN
     Indication: CYSTIC FIBROSIS
     Dosage: UNK UNK, BID (112 OT)
     Route: 055
     Dates: start: 20160309, end: 20160405
  26. TOBI PODHALER [Suspect]
     Active Substance: TOBRAMYCIN
     Dosage: UNK UNK, BID (112 OT)
     Route: 055
     Dates: start: 20170414, end: 20170512
  27. TOBI PODHALER [Suspect]
     Active Substance: TOBRAMYCIN
     Dosage: UNK UNK, BID (112 OT)
     Route: 055
     Dates: start: 20171101, end: 20171129
  28. PRILOSEC [Concomitant]
     Active Substance: OMEPRAZOLE MAGNESIUM
     Indication: GASTROOESOPHAGEAL REFLUX DISEASE
     Dosage: UNK
     Route: 065
     Dates: start: 20011109
  29. FLONASE                            /00908302/ [Concomitant]
     Active Substance: MOMETASONE FUROATE
     Indication: RHINITIS ALLERGIC
     Dosage: UNK
     Route: 065
     Dates: start: 20150409, end: 20171214
  30. XARELTO [Concomitant]
     Active Substance: RIVAROXABAN
     Indication: CENTRAL VENOUS CATHETERISATION
     Dosage: UNK
     Route: 065
     Dates: start: 20170727, end: 20170810
  31. LINEZOLID. [Concomitant]
     Active Substance: LINEZOLID
     Indication: ANTI-INFECTIVE THERAPY
     Dosage: UNK
     Route: 065
     Dates: start: 20171030, end: 20171031
  32. TOBI PODHALER [Suspect]
     Active Substance: TOBRAMYCIN
     Dosage: UNK UNK, BID (112 OT)
     Route: 055
     Dates: start: 20161223, end: 20170120
  33. TOBI PODHALER [Suspect]
     Active Substance: TOBRAMYCIN
     Dosage: UNK UNK, BID (112 OT)
     Route: 055
     Dates: start: 20170217, end: 20170317
  34. TOBI PODHALER [Suspect]
     Active Substance: TOBRAMYCIN
     Dosage: UNK UNK, BID (112 OT)
     Route: 055
     Dates: start: 20170609, end: 20170707
  35. TOBI PODHALER [Suspect]
     Active Substance: TOBRAMYCIN
     Dosage: UNK UNK, BID (112 OT)
     Route: 055
     Dates: start: 20180514, end: 20180610
  36. TOBI PODHALER [Suspect]
     Active Substance: TOBRAMYCIN
     Dosage: UNK UNK, BID (112 OT)
     Route: 055
     Dates: start: 20181115, end: 20181213
  37. CHOLECALCIFEROL [Concomitant]
     Active Substance: CHOLECALCIFEROL
     Indication: VITAMIN D DEFICIENCY
     Dosage: UNK
     Route: 065
     Dates: start: 20090611, end: 20170627
  38. VANCOMYCIN [Concomitant]
     Active Substance: VANCOMYCIN
     Dosage: UNK
     Route: 065
     Dates: start: 20171029, end: 20171030
  39. SODIUM CHLORIDE. [Concomitant]
     Active Substance: SODIUM CHLORIDE
     Indication: ELECTROLYTE SUBSTITUTION THERAPY
     Dosage: UNK
     Route: 065
     Dates: start: 20171027, end: 20171028
  40. INFLUENZA VACCINE [Concomitant]
     Active Substance: INFLUENZA VIRUS VACCINE
     Indication: PROPHYLAXIS
     Dosage: UNK
     Route: 065
     Dates: start: 20171031, end: 20171031
  41. VITAMIN D3 [Concomitant]
     Active Substance: CHOLECALCIFEROL
     Indication: VITAMIN D DEFICIENCY
     Dosage: UNK
     Route: 065
     Dates: start: 20170627
  42. TOBI PODHALER [Suspect]
     Active Substance: TOBRAMYCIN
     Dosage: UNK UNK, BID (112 OT)
     Route: 055
     Dates: start: 20170804, end: 20170901
  43. XARELTO [Concomitant]
     Active Substance: RIVAROXABAN
     Indication: THROMBOSIS PROPHYLAXIS
     Dosage: UNK
     Route: 065
     Dates: start: 20170216, end: 20170302
  44. TOBRAMYCIN. [Concomitant]
     Active Substance: TOBRAMYCIN
     Indication: ANTI-INFECTIVE THERAPY
     Dosage: UNK
     Route: 065
     Dates: start: 20171029, end: 20171030
  45. TOBI PODHALER [Suspect]
     Active Substance: TOBRAMYCIN
     Dosage: UNK UNK, BID (112 OT)
     Route: 055
     Dates: start: 20160630, end: 20160727
  46. TOBI PODHALER [Suspect]
     Active Substance: TOBRAMYCIN
     Dosage: UNK UNK, BID (112 OT)
     Route: 055
     Dates: start: 20160825, end: 20160922
  47. TOBI PODHALER [Suspect]
     Active Substance: TOBRAMYCIN
     Dosage: UNK UNK, BID (112 OT)
     Route: 055
     Dates: start: 20171006, end: 20171027
  48. TOBI PODHALER [Suspect]
     Active Substance: TOBRAMYCIN
     Dosage: UNK UNK, BID (112 OT)
     Route: 055
     Dates: start: 20190110, end: 20190207
  49. CREON [Concomitant]
     Active Substance: PANCRELIPASE AMYLASE\PANCRELIPASE LIPASE\PANCRELIPASE PROTEASE
     Indication: PANCREATIC FAILURE
     Dosage: UNK
     Route: 065
     Dates: start: 20090924
  50. VANCOMYCIN [Concomitant]
     Active Substance: VANCOMYCIN
     Indication: ANTI-INFECTIVE THERAPY
     Dosage: UNK
     Route: 065
     Dates: start: 20171028, end: 20171028

REACTIONS (22)
  - Wrist fracture [Recovered/Resolved]
  - Arthralgia [Recovered/Resolved]
  - Pain [Recovered/Resolved]
  - Pleuritic pain [Recovered/Resolved]
  - Infective pulmonary exacerbation of cystic fibrosis [Recovered/Resolved]
  - Vomiting [Recovered/Resolved]
  - Paraesthesia [Recovered/Resolved]
  - Influenza [Recovered/Resolved]
  - Nasal congestion [Recovered/Resolved]
  - Upper respiratory tract infection [Recovered/Resolved]
  - Dyspnoea [Recovered/Resolved]
  - Sputum increased [Recovered/Resolved]
  - Cough [Recovered/Resolved]
  - Nausea [Recovered/Resolved]
  - Respiratory tract congestion [Recovered/Resolved]
  - Abdominal pain upper [Recovered/Resolved]
  - Headache [Recovered/Resolved]
  - Dyspnoea exertional [Recovered/Resolved]
  - Fatigue [Recovered/Resolved]
  - Pyrexia [Recovered/Resolved]
  - Clostridium difficile infection [Recovered/Resolved]
  - Dizziness [Recovered/Resolved]

NARRATIVE: CASE EVENT DATE: 20160811
